FAERS Safety Report 17876409 (Version 4)
Quarter: 2023Q2

REPORT INFORMATION
  Report Type: Report from Study
  Country: DE (occurrence: DE)
  Receive Date: 20200609
  Receipt Date: 20230628
  Transmission Date: 20230722
  Serious: Yes (Hospitalization)
  Sender: FDA-Public Use
  Company Number: DE-JNJFOC-20200419590

PATIENT
  Age: 8 Decade
  Sex: Female
  Weight: 83 kg

DRUGS (18)
  1. TRABECTEDIN [Suspect]
     Active Substance: TRABECTEDIN
     Indication: Ovarian cancer recurrent
     Route: 042
     Dates: start: 20200401, end: 20200401
  2. TRABECTEDIN [Suspect]
     Active Substance: TRABECTEDIN
     Indication: Fallopian tube cancer
  3. TRABECTEDIN [Suspect]
     Active Substance: TRABECTEDIN
     Indication: Malignant peritoneal neoplasm
  4. DOXORUBICIN HYDROCHLORIDE [Suspect]
     Active Substance: DOXORUBICIN HYDROCHLORIDE
     Indication: Ovarian cancer recurrent
     Route: 042
     Dates: start: 20200401, end: 20200401
  5. DOXORUBICIN HYDROCHLORIDE [Suspect]
     Active Substance: DOXORUBICIN HYDROCHLORIDE
     Indication: Fallopian tube cancer
  6. DOXORUBICIN HYDROCHLORIDE [Suspect]
     Active Substance: DOXORUBICIN HYDROCHLORIDE
     Indication: Malignant peritoneal neoplasm
  7. LEVOTHYROXINE SODIUM [Concomitant]
     Active Substance: LEVOTHYROXINE SODIUM
     Dosage: FOR 1 HOUR
  8. CANDESARTAN [Concomitant]
     Active Substance: CANDESARTAN
     Route: 065
  9. IMODIUM [Concomitant]
     Active Substance: LOPERAMIDE HYDROCHLORIDE
     Route: 065
  10. ONDANSETRON [Concomitant]
     Active Substance: ONDANSETRON
     Route: 065
  11. PANTOZOL [Concomitant]
     Active Substance: PANTOPRAZOLE SODIUM
     Route: 065
  12. NUTRIFLEX SPECIAL [Concomitant]
     Dosage: VIA PORT
     Route: 050
  13. ADDEL N [CHROMIC CHLORIDE;COPPER CHLORIDE;FERROUS CHLORIDE;MANGANESE C [Concomitant]
     Dosage: ON MONDAYS
     Route: 065
  14. CERNEVIT [Concomitant]
     Active Substance: VITAMINS
     Dosage: ON MONDAYS
     Route: 065
  15. CHOLESTYRAMINE [Concomitant]
     Active Substance: CHOLESTYRAMINE
     Dosage: BILE ACID SEQUESTRANTS
     Route: 065
  16. POTASSIUM CHLORIDE [Concomitant]
     Active Substance: POTASSIUM CHLORIDE
     Dosage: PROLONGED RELEASE; DEPENDING ON POTASSIUM VALUE
     Route: 065
  17. LACTATED RINGERS SOLUTION [Concomitant]
     Active Substance: CALCIUM CHLORIDE\POTASSIUM CHLORIDE\SODIUM CHLORIDE\SODIUM LACTATE
     Dosage: OR JONO 500 ML I.V
  18. FRAGMIN [Concomitant]
     Active Substance: DALTEPARIN SODIUM
     Dosage: PRE-FILLED SYRINGE
     Route: 058

REACTIONS (2)
  - Ileus [Recovered/Resolved]
  - Acute kidney injury [Recovered/Resolved]

NARRATIVE: CASE EVENT DATE: 20200413
